FAERS Safety Report 17309514 (Version 3)
Quarter: 2021Q1

REPORT INFORMATION
  Report Type: Spontaneous
  Country: US (occurrence: US)
  Receive Date: 20200123
  Receipt Date: 20210111
  Transmission Date: 20210419
  Serious: No
  Sender: FDA-Public Use
  Company Number: US-ROCHE-2460142

PATIENT
  Sex: Male

DRUGS (6)
  1. CELEBREX [Concomitant]
     Active Substance: CELECOXIB
     Route: 048
  2. POLYETHYLENE GLYCOL [Concomitant]
     Active Substance: POLYETHYLENE GLYCOLS
     Route: 048
  3. HEMLIBRA [Suspect]
     Active Substance: EMICIZUMAB-KXWH
     Indication: FACTOR VIII DEFICIENCY
     Dosage: STRENGTH: 105 MG/0.7 ML.
     Route: 058
     Dates: start: 20190107
  4. HEMLIBRA [Suspect]
     Active Substance: EMICIZUMAB-KXWH
     Dosage: STRENGTH: 150 MG/ ML
     Route: 058
     Dates: start: 201906
  5. ACETAMINOPHEN. [Concomitant]
     Active Substance: ACETAMINOPHEN
     Route: 048
  6. OXYCODONE [Concomitant]
     Active Substance: OXYCODONE
     Route: 048

REACTIONS (1)
  - Haemorrhage [Recovered/Resolved]
